FAERS Safety Report 7869114 (Version 6)
Quarter: 2014Q2

REPORT INFORMATION
  Report Type: Spontaneous
  Country: US (occurrence: US)
  Receive Date: 20110324
  Receipt Date: 20140404
  Transmission Date: 20141212
  Serious: Yes (Hospitalization)
  Sender: FDA-Public Use
  Company Number: US-BAYER-2011-023890

PATIENT
  Age: 18 Year
  Sex: Female
  Weight: 113 kg

DRUGS (15)
  1. YAZ [Suspect]
     Indication: CONTRACEPTION
     Dosage: UNK
     Dates: start: 20100105, end: 20100622
  2. YASMIN [Suspect]
     Indication: CONTRACEPTION
     Dosage: UNK
     Dates: start: 200305, end: 20080928
  3. YASMIN [Suspect]
     Indication: POLYCYSTIC OVARIES
  4. OCELLA [Suspect]
     Indication: CONTRACEPTION
     Dosage: UNK
     Dates: start: 20080929, end: 20100104
  5. OCELLA [Suspect]
     Indication: CONTRACEPTION
     Dosage: UNK
     Dates: start: 20100623, end: 20110804
  6. CITALOPRAM [Concomitant]
     Dosage: UNK UNK, QD
     Dates: start: 2006, end: 2010
  7. METFORMIN [Concomitant]
     Dosage: 1000 MG, QD
  8. TRILEPTAL [Concomitant]
     Dosage: UNK UNK, QD
  9. SPIRONOLACTONE [Concomitant]
     Dosage: UNK UNK, QD
  10. TYLENOL WITH CODEINE [Concomitant]
     Dosage: UNK UNK, PRN
  11. DIAZEPAM [Concomitant]
     Dosage: UNK UNK, PRN
  12. IBUPROFEN [Concomitant]
     Dosage: UNK
     Dates: start: 20090403
  13. METHOCARBAMOL [Concomitant]
     Dosage: UNK
     Dates: start: 20090403
  14. SKELAXIN [Concomitant]
     Dosage: UNK
     Dates: start: 20090403
  15. DILAUDID [Concomitant]
     Indication: PAIN MANAGEMENT

REACTIONS (5)
  - Gallbladder disorder [None]
  - Cholecystitis acute [None]
  - Injury [None]
  - Pain [None]
  - General physical health deterioration [None]
